FAERS Safety Report 7707105-8 (Version None)
Quarter: 2011Q3

REPORT INFORMATION
  Report Type: 
  Country: None (occurrence: None)
  Receive Date: 20110824
  Receipt Date: 20110819
  Transmission Date: 20111222
  Serious: No
  Sender: FDA-Public Use
  Company Number: US-PFIZER INC-2011086839

PATIENT
  Sex: Female
  Weight: 56.68 kg

DRUGS (9)
  1. SEROQUEL [Concomitant]
     Indication: DEPRESSION
     Dosage: 25 MG, 2X/DAY
     Route: 048
  2. NICOTROL [Suspect]
     Indication: SMOKING CESSATION THERAPY
     Dosage: UNK MG/ML, UNK
     Route: 045
     Dates: start: 20110301, end: 20110101
  3. LISINOPRIL [Concomitant]
     Indication: HYPERTENSION
     Dosage: 10 MG, DAILY
  4. GABAPENTIN [Concomitant]
     Indication: SCIATIC NERVE INJURY
     Dosage: 300 MG, 2X/DAY
  5. WELLBUTRIN [Suspect]
     Indication: DEPRESSION
     Dosage: 150 MG, 2X/DAY
     Route: 048
  6. SIMVASTATIN [Concomitant]
     Indication: BLOOD CHOLESTEROL ABNORMAL
     Dosage: 20 MG, DAILY
  7. LAMOTRIGINE [Concomitant]
     Indication: DEPRESSION
     Dosage: 100 MG, 2X/DAY
  8. WELLBUTRIN [Suspect]
     Indication: SMOKING CESSATION THERAPY
  9. SYNTHROID [Concomitant]
     Indication: THYROID DISORDER
     Dosage: 0.05 MG, DAILY
     Route: 048

REACTIONS (4)
  - SINUSITIS [None]
  - EPISTAXIS [None]
  - RHINORRHOEA [None]
  - DRUG INEFFECTIVE [None]
